FAERS Safety Report 5839529-8 (Version None)
Quarter: 2008Q3

REPORT INFORMATION
  Report Type: 
  Country: None (occurrence: None)
  Receive Date: 20080807
  Receipt Date: 20080727
  Transmission Date: 20090109
  Serious: Yes (Hospitalization, Other)
  Sender: FDA-Public Use
  Company Number: 15180

PATIENT
  Age: 59 Year
  Sex: Male

DRUGS (5)
  1. MORPHINE SULFATE [Suspect]
     Indication: BACK PAIN
     Dosage: 60 MG TID ORALLY
     Route: 048
     Dates: start: 20050101, end: 20080101
  2. AN UNKNOWN MEDICATION FOR HIGH CHOLESTEROL [Concomitant]
  3. HYDROCODONE BITARTRATE [Concomitant]
  4. ACETAMINOPHEN [Concomitant]
  5. DIAZEPAM [Concomitant]

REACTIONS (6)
  - COGNITIVE DISORDER [None]
  - DRUG TOXICITY [None]
  - HALLUCINATION [None]
  - PHARMACEUTICAL PRODUCT COMPLAINT [None]
  - PSYCHOTIC DISORDER [None]
  - SOMNOLENCE [None]
